FAERS Safety Report 9125627 (Version 1)
Quarter: 2013Q1

REPORT INFORMATION
  Report Type: Spontaneous
  Country: US (occurrence: US)
  Receive Date: 20130227
  Receipt Date: 20130227
  Transmission Date: 20140127
  Serious: No
  Sender: FDA-Public Use
  Company Number: US-009507513-1302USA008909

PATIENT
  Sex: Female

DRUGS (1)
  1. SAPHRIS [Suspect]
     Dosage: 5 MG, BID
     Route: 060
     Dates: start: 20130204, end: 201302

REACTIONS (2)
  - Headache [Recovering/Resolving]
  - Drug dose omission [Unknown]
